FAERS Safety Report 20053267 (Version 11)
Quarter: 2024Q1

REPORT INFORMATION
  Report Type: Spontaneous
  Country: US (occurrence: US)
  Receive Date: 20211110
  Receipt Date: 20240229
  Transmission Date: 20240410
  Serious: Yes (Other)
  Sender: FDA-Public Use
  Company Number: US-PFIZER INC-2021608489

PATIENT
  Age: 37 Year
  Sex: Female

DRUGS (2)
  1. XELJANZ XR [Suspect]
     Active Substance: TOFACITINIB CITRATE
     Indication: Rheumatoid arthritis
     Dosage: UNK
     Dates: start: 2018
  2. AIMOVIG [Suspect]
     Active Substance: ERENUMAB-AOOE
     Indication: Migraine
     Dosage: UNK

REACTIONS (39)
  - Gastric ulcer [Unknown]
  - Joint arthroplasty [Unknown]
  - Dystonia [Unknown]
  - Knee arthroplasty [Unknown]
  - Rheumatoid arthritis [Unknown]
  - Condition aggravated [Not Recovered/Not Resolved]
  - Therapeutic product effect incomplete [Unknown]
  - Somnolence [Unknown]
  - Fatigue [Unknown]
  - Inflammation [Unknown]
  - Stress [Unknown]
  - Migraine [Unknown]
  - Gastrointestinal disorder [Unknown]
  - COVID-19 [Unknown]
  - Tenosynovitis stenosans [Unknown]
  - Peripheral venous disease [Unknown]
  - Arthropathy [Unknown]
  - Illness [Recovered/Resolved]
  - Swelling [Unknown]
  - Arthralgia [Unknown]
  - Osteoarthritis [Unknown]
  - Tendonitis [Unknown]
  - Post-acute COVID-19 syndrome [Unknown]
  - Upper respiratory tract infection [Unknown]
  - Discomfort [Unknown]
  - Upper-airway cough syndrome [Unknown]
  - Chronic sinusitis [Unknown]
  - Gastrooesophageal reflux disease [Unknown]
  - Anxiety [Unknown]
  - Dyspnoea [Unknown]
  - Tachycardia [Unknown]
  - Alopecia [Not Recovered/Not Resolved]
  - Pain in extremity [Unknown]
  - Gait disturbance [Unknown]
  - Injury [Unknown]
  - Sensitivity to weather change [Unknown]
  - Insomnia [Not Recovered/Not Resolved]
  - Gingival recession [Unknown]
  - Oral fungal infection [Recovering/Resolving]

NARRATIVE: CASE EVENT DATE: 20200101
